FAERS Safety Report 17834909 (Version 1)
Quarter: 2020Q2

REPORT INFORMATION
  Report Type: Spontaneous
  Country: HR (occurrence: HR)
  Receive Date: 20200528
  Receipt Date: 20200528
  Transmission Date: 20200714
  Serious: Yes (Other)
  Sender: FDA-Public Use
  Company Number: HR-JNJFOC-20200525283

PATIENT
  Sex: Male

DRUGS (2)
  1. HALOPERIDOL. [Suspect]
     Active Substance: HALOPERIDOL
     Indication: PRODUCT USED FOR UNKNOWN INDICATION
     Route: 065
     Dates: start: 202001, end: 202001
  2. Q-PIN [Suspect]
     Active Substance: QUETIAPINE FUMARATE
     Indication: PRODUCT USED FOR UNKNOWN INDICATION
     Route: 065
     Dates: start: 202001, end: 202001

REACTIONS (5)
  - Bronchospasm [Unknown]
  - Salivary hypersecretion [Unknown]
  - Cholinergic syndrome [Unknown]
  - Miosis [Unknown]
  - Blood cholinesterase decreased [Unknown]

NARRATIVE: CASE EVENT DATE: 20200120
